FAERS Safety Report 11762705 (Version 1)
Quarter: 2015Q4

REPORT INFORMATION
  Report Type: Spontaneous
  Country: JP (occurrence: JP)
  Receive Date: 20151120
  Receipt Date: 20151120
  Transmission Date: 20160304
  Serious: Yes (Other)
  Sender: FDA-Public Use
  Company Number: JP-ABBVIE-15P-087-1501143-00

PATIENT
  Age: 77 Year
  Sex: Female
  Weight: 52 kg

DRUGS (19)
  1. SEVOFRANE [Suspect]
     Active Substance: SEVOFLURANE
     Indication: GENERAL ANAESTHESIA
  2. PROPOFOL. [Concomitant]
     Active Substance: PROPOFOL
     Indication: GENERAL ANAESTHESIA
     Route: 042
     Dates: start: 20140526, end: 20140526
  3. ROPION [Concomitant]
     Active Substance: FLURBIPROFEN AXETIL
     Indication: POSTOPERATIVE ANALGESIA
     Route: 042
     Dates: start: 20140526, end: 20140526
  4. SEVOFRANE [Suspect]
     Active Substance: SEVOFLURANE
     Indication: INDUCTION OF ANAESTHESIA
  5. SEFMAZON [Suspect]
     Active Substance: CEFAZOLIN
     Indication: INFECTION PROPHYLAXIS
     Route: 041
     Dates: start: 20140526, end: 20140528
  6. ESLAX [Concomitant]
     Active Substance: ROCURONIUM BROMIDE
     Dates: start: 20141112, end: 20141112
  7. BRIDION [Concomitant]
     Active Substance: SUGAMMADEX
     Indication: GENERAL ANAESTHESIA
     Route: 042
     Dates: start: 20140526, end: 20140526
  8. DECADRON (DEXAMETHASONE SODIUM PHOSPHATE) [Concomitant]
     Active Substance: DEXAMETHASONE SODIUM PHOSPHATE
     Indication: PROPHYLAXIS
  9. SEVOFRANE [Suspect]
     Active Substance: SEVOFLURANE
     Indication: TONGUE NEOPLASM MALIGNANT STAGE UNSPECIFIED
     Dosage: MAINLY 1.5%
     Route: 055
     Dates: start: 20140526, end: 20140526
  10. PROPOFOL. [Concomitant]
     Active Substance: PROPOFOL
     Indication: INDUCTION OF ANAESTHESIA
     Route: 042
     Dates: start: 20141112, end: 20141112
  11. DECADRON (DEXAMETHASONE SODIUM PHOSPHATE) [Concomitant]
     Active Substance: DEXAMETHASONE SODIUM PHOSPHATE
     Indication: INFLAMMATION OF WOUND
     Route: 061
     Dates: start: 20140526, end: 20140526
  12. ULTIVA [Concomitant]
     Active Substance: REMIFENTANIL HYDROCHLORIDE
     Indication: GENERAL ANAESTHESIA
     Route: 042
     Dates: start: 20140526, end: 20140526
  13. EPHEDRIN [Concomitant]
     Active Substance: EPHEDRINE HYDROCHLORIDE
     Indication: VASOPRESSIVE THERAPY
     Route: 042
     Dates: start: 20141112, end: 20141112
  14. ULTIVA [Concomitant]
     Active Substance: REMIFENTANIL HYDROCHLORIDE
     Dosage: 0.05 OR 0.15 MCG/KG/MIN
     Route: 042
     Dates: start: 20141112, end: 20141112
  15. ESLAX [Concomitant]
     Active Substance: ROCURONIUM BROMIDE
     Indication: GENERAL ANAESTHESIA
     Route: 042
     Dates: start: 20140526, end: 20140526
  16. EPHEDRIN [Concomitant]
     Active Substance: EPHEDRINE HYDROCHLORIDE
     Indication: PROCEDURAL HYPOTENSION
     Route: 042
     Dates: start: 20140526, end: 20140526
  17. SEVOFRANE [Suspect]
     Active Substance: SEVOFLURANE
     Indication: ORAL PAPILLOMA
     Route: 065
     Dates: start: 20141112, end: 20141112
  18. SEVOFRANE [Suspect]
     Active Substance: SEVOFLURANE
     Indication: MAINTENANCE OF ANAESTHESIA
  19. VICCILLIN [Concomitant]
     Active Substance: AMPICILLIN
     Indication: PRODUCT USED FOR UNKNOWN INDICATION
     Route: 041
     Dates: start: 20141112, end: 20141114

REACTIONS (6)
  - Alanine aminotransferase increased [Recovered/Resolved]
  - Aspartate aminotransferase increased [Recovered/Resolved]
  - Gamma-glutamyltransferase increased [Recovered/Resolved]
  - Aspartate aminotransferase increased [Recovered/Resolved]
  - Gamma-glutamyltransferase increased [Recovered/Resolved]
  - Alanine aminotransferase increased [Recovered/Resolved]

NARRATIVE: CASE EVENT DATE: 20140527
